FAERS Safety Report 24439423 (Version 5)
Quarter: 2025Q1

REPORT INFORMATION
  Report Type: Report from Study
  Country: US (occurrence: US)
  Receive Date: 20241015
  Receipt Date: 20250225
  Transmission Date: 20250408
  Serious: Yes (Other)
  Sender: SUNOVION
  Company Number: US-SUMITOMO PHARMA SWITZERLAND GMBH-2024SPA003344

PATIENT

DRUGS (1)
  1. ORGOVYX [Suspect]
     Active Substance: RELUGOLIX
     Indication: Prostate cancer
     Dosage: 120 MG, QD
     Route: 048
     Dates: start: 20240726

REACTIONS (8)
  - Metastases to bone [Unknown]
  - Fall [Unknown]
  - Pain [Unknown]
  - Skin fissures [Unknown]
  - Glycosylated haemoglobin increased [Unknown]
  - Urinary tract infection [Unknown]
  - Asthenia [Unknown]
  - Incorrect dose administered [Unknown]
